FAERS Safety Report 6134649-5 (Version None)
Quarter: 2009Q1

REPORT INFORMATION
  Report Type: 
  Country: None (occurrence: None)
  Receive Date: 20090327
  Receipt Date: 20090312
  Transmission Date: 20090719
  Serious: Yes (Other)
  Sender: FDA-Public Use
  Company Number: PHBS2009JP00663

PATIENT
  Age: 32 Year
  Sex: Female

DRUGS (4)
  1. CYCLOSPORINE [Suspect]
     Indication: SYSTEMIC LUPUS ERYTHEMATOSUS
     Dosage: UNK
  2. CYCLOSPORINE [Suspect]
     Indication: LUPUS NEPHRITIS
  3. PREDNISOLONE [Suspect]
     Indication: SYSTEMIC LUPUS ERYTHEMATOSUS
     Route: 040
  4. PREDNISOLONE [Suspect]
     Indication: LUPUS NEPHRITIS

REACTIONS (7)
  - ABSCESS [None]
  - CRYPTOCOCCAL CUTANEOUS INFECTION [None]
  - FUNGAL SEPSIS [None]
  - GRANULOMA [None]
  - RASH ERYTHEMATOUS [None]
  - RASH MACULAR [None]
  - STAPHYLOCOCCAL SEPSIS [None]
